FAERS Safety Report 9230392 (Version 1)
Quarter: 2013Q2

REPORT INFORMATION
  Report Type: Spontaneous
  Country: US (occurrence: US)
  Receive Date: 20130415
  Receipt Date: 20130415
  Transmission Date: 20140414
  Serious: Yes (Hospitalization)
  Sender: FDA-Public Use
  Company Number: US-MUTUAL PHARMACEUTICAL COMPANY, INC.-BCTM20130036

PATIENT
  Sex: Female

DRUGS (1)
  1. BACTRIM DS [Suspect]
     Indication: PRODUCT USED FOR UNKNOWN INDICATION
     Route: 065
     Dates: start: 20130316

REACTIONS (3)
  - Atrial fibrillation [Unknown]
  - Hepatic enzyme increased [Unknown]
  - Pyrexia [Unknown]
